FAERS Safety Report 12853394 (Version 1)
Quarter: 2016Q4

REPORT INFORMATION
  Report Type: Spontaneous
  Country: JP (occurrence: JP)
  Receive Date: 20161017
  Receipt Date: 20161017
  Transmission Date: 20170207
  Serious: Yes (Other)
  Sender: FDA-Public Use
  Company Number: JP-BAXTER-2016BAX052228

PATIENT
  Age: 36 Year
  Sex: Female

DRUGS (34)
  1. ENDOXAN LYOPHILISAT [Suspect]
     Active Substance: CYCLOPHOSPHAMIDE
     Indication: CHORIOCARCINOMA
     Dosage: 2 G/M2; DAY 1 TO 2
     Route: 065
  2. ETOPOSIDE. [Suspect]
     Active Substance: ETOPOSIDE
     Dosage: 11 HOUR; DAY 1 TO 3
     Route: 041
  3. CARBOPLATIN. [Suspect]
     Active Substance: CARBOPLATIN
     Indication: CHORIOCARCINOMA
     Dosage: 1 HOUR; DAY 1 TO 2
     Route: 041
  4. ACTINOMYCIN D [Suspect]
     Active Substance: DACTINOMYCIN
     Indication: CHORIOCARCINOMA
     Route: 065
  5. ACTINOMYCIN D [Suspect]
     Active Substance: DACTINOMYCIN
     Route: 065
  6. PACLITAXEL. [Concomitant]
     Active Substance: PACLITAXEL
     Route: 065
  7. ETOPOSIDE. [Suspect]
     Active Substance: ETOPOSIDE
     Route: 065
  8. TRIMETHOPRIM\SULFAMETHOXAZOLE [Concomitant]
     Indication: PROPHYLAXIS
     Route: 065
  9. ACICLOVIR [Concomitant]
     Active Substance: ACYCLOVIR
     Indication: PROPHYLAXIS
     Route: 065
  10. CISPLATIN. [Concomitant]
     Active Substance: CISPLATIN
     Route: 065
  11. ETOPOSIDE. [Suspect]
     Active Substance: ETOPOSIDE
     Dosage: 11 HOURS FOR 1-2 DAYS
     Route: 041
  12. METHOTREXATE. [Suspect]
     Active Substance: METHOTREXATE
     Indication: GESTATIONAL TROPHOBLASTIC TUMOUR
     Dosage: 20 MG/M2 BODY SURFACE
     Route: 065
  13. LEVOFLOXACIN. [Concomitant]
     Active Substance: LEVOFLOXACIN
     Indication: PROPHYLAXIS
     Route: 065
  14. CISPLATIN. [Concomitant]
     Active Substance: CISPLATIN
     Indication: CHORIOCARCINOMA
     Route: 065
  15. FLUOROURACIL. [Concomitant]
     Active Substance: FLUOROURACIL
     Indication: CHORIOCARCINOMA
     Route: 065
  16. BLEOMYCIN [Concomitant]
     Active Substance: BLEOMYCIN SULFATE
     Indication: CHORIOCARCINOMA
     Route: 065
  17. ETOPOSIDE. [Suspect]
     Active Substance: ETOPOSIDE
     Route: 065
  18. ETOPOSIDE. [Suspect]
     Active Substance: ETOPOSIDE
     Route: 065
  19. ETOPOSIDE. [Suspect]
     Active Substance: ETOPOSIDE
     Dosage: 11 HOURS FOR 1-2 DAYS
     Route: 041
  20. VINCRISTINE [Suspect]
     Active Substance: VINCRISTINE
     Indication: CHORIOCARCINOMA
     Route: 065
  21. FLUCONAZOLE. [Concomitant]
     Active Substance: FLUCONAZOLE
     Indication: PROPHYLAXIS
     Route: 065
  22. CISPLATIN. [Concomitant]
     Active Substance: CISPLATIN
     Route: 065
  23. IFEX [Suspect]
     Active Substance: IFOSFAMIDE
     Indication: CHORIOCARCINOMA
     Dosage: 1 HOUR; DAY 1 TO 2
     Route: 041
  24. ENDOXAN LYOPHILISAT [Suspect]
     Active Substance: CYCLOPHOSPHAMIDE
     Route: 065
  25. ETOPOSIDE. [Suspect]
     Active Substance: ETOPOSIDE
     Route: 065
  26. CARBOPLATIN. [Suspect]
     Active Substance: CARBOPLATIN
     Dosage: 1 HOUR; DAY 1 TO 4
     Route: 041
  27. ACTINOMYCIN D [Suspect]
     Active Substance: DACTINOMYCIN
     Route: 065
  28. IFEX [Suspect]
     Active Substance: IFOSFAMIDE
     Dosage: 1 HOUR; DAY 1 TO 4
     Route: 041
  29. ETOPOSIDE. [Suspect]
     Active Substance: ETOPOSIDE
     Route: 065
  30. CISPLATIN. [Concomitant]
     Active Substance: CISPLATIN
     Route: 065
  31. PACLITAXEL. [Concomitant]
     Active Substance: PACLITAXEL
     Indication: CHORIOCARCINOMA
     Route: 065
  32. ETOPOSIDE. [Suspect]
     Active Substance: ETOPOSIDE
     Indication: CHORIOCARCINOMA
     Dosage: 11 HOUR; DAY 1 TO 3
     Route: 041
  33. METHOTREXATE. [Suspect]
     Active Substance: METHOTREXATE
     Indication: CHORIOCARCINOMA
     Route: 065
  34. METHOTREXATE. [Suspect]
     Active Substance: METHOTREXATE
     Route: 065

REACTIONS (13)
  - Neutropenia [Unknown]
  - Fatigue [Unknown]
  - Peripheral sensory neuropathy [Unknown]
  - Drug ineffective [Unknown]
  - Febrile neutropenia [Unknown]
  - Pneumonia [Unknown]
  - Anaemia [Unknown]
  - Mouth ulceration [Unknown]
  - Blood creatinine increased [Unknown]
  - Hepatic function abnormal [Unknown]
  - Thrombocytopenia [Unknown]
  - Skin exfoliation [Unknown]
  - Decreased appetite [Unknown]
